FAERS Safety Report 5376127-7 (Version None)
Quarter: 2007Q3

REPORT INFORMATION
  Report Type: 
  Country: None (occurrence: None)
  Receive Date: 20070702
  Receipt Date: 20070620
  Transmission Date: 20080115
  Serious: Yes (Life-Threatening)
  Sender: FDA-Public Use
  Company Number: B0477267A

PATIENT
  Age: 53 Year
  Sex: Female

DRUGS (6)
  1. AUGMENTIN '125' [Suspect]
     Route: 042
     Dates: start: 20070504, end: 20070504
  2. KETALAR [Concomitant]
     Indication: GENERAL ANAESTHESIA
     Route: 042
  3. DIPRIVAN [Concomitant]
     Indication: GENERAL ANAESTHESIA
     Route: 042
  4. NIMBEX [Concomitant]
     Indication: GENERAL ANAESTHESIA
     Route: 042
  5. SUFENTA [Concomitant]
     Indication: GENERAL ANAESTHESIA
     Route: 042
  6. ATARAX [Concomitant]
     Indication: PREMEDICATION
     Route: 065

REACTIONS (7)
  - ANAPHYLACTIC SHOCK [None]
  - CIRCULATORY COLLAPSE [None]
  - CYANOSIS [None]
  - HYPOTENSION [None]
  - OXYGEN SATURATION DECREASED [None]
  - TACHYCARDIA [None]
  - URTICARIA [None]
